FAERS Safety Report 5278252-8 (Version None)
Quarter: 2007Q1

REPORT INFORMATION
  Report Type: 
  Country: None (occurrence: None)
  Receive Date: 20070328
  Receipt Date: 20070320
  Transmission Date: 20070707
  Serious: Yes (Hospitalization, Disabling)
  Sender: FDA-Public Use
  Company Number: US-JNJFOC-20070304748

PATIENT
  Age: 3 Year
  Sex: Male
  Weight: 17.5 kg

DRUGS (2)
  1. HALDOL [Suspect]
     Indication: SEDATION
     Route: 030
  2. TRILEPTAL [Concomitant]
     Indication: CONVULSION
     Route: 048

REACTIONS (7)
  - ADVERSE EVENT [None]
  - DEVELOPMENTAL DELAY [None]
  - DYSKINESIA [None]
  - HYPOTONIA [None]
  - NEUROLEPTIC MALIGNANT SYNDROME [None]
  - POST-TRAUMATIC STRESS DISORDER [None]
  - POSTURING [None]
